APPROVED DRUG PRODUCT: METRONIDAZOLE
Active Ingredient: METRONIDAZOLE
Strength: 500MG
Dosage Form/Route: TABLET;ORAL
Application: A070039 | Product #001
Applicant: STRIDES PHARMA GLOBAL PTE LTD
Approved: Jan 29, 1985 | RLD: No | RS: No | Type: DISCN